FAERS Safety Report 10684901 (Version 1)
Quarter: 2014Q4

REPORT INFORMATION
  Report Type: Spontaneous
  Country: SE (occurrence: SE)
  Receive Date: 20141231
  Receipt Date: 20141231
  Transmission Date: 20150529
  Serious: Yes (Other)
  Sender: FDA-Public Use
  Company Number: SE-SA-2014SA178032

PATIENT
  Age: 40 Year
  Sex: Female

DRUGS (6)
  1. ARAVA [Suspect]
     Active Substance: LEFLUNOMIDE
     Route: 048
     Dates: end: 201411
  2. ARAVA [Suspect]
     Active Substance: LEFLUNOMIDE
     Route: 048
     Dates: start: 201405
  3. OMEPRAZOLE. [Concomitant]
     Active Substance: OMEPRAZOLE
  4. DIVISUN [Concomitant]
  5. KALCIPOS [Concomitant]
     Active Substance: CALCIUM CARBONATE
  6. PLAQUENIL [Concomitant]
     Active Substance: HYDROXYCHLOROQUINE SULFATE

REACTIONS (2)
  - Blue toe syndrome [Not Recovered/Not Resolved]
  - Granuloma annulare [Recovering/Resolving]

NARRATIVE: CASE EVENT DATE: 201405
